FAERS Safety Report 4963600-6 (Version None)
Quarter: 2006Q1

REPORT INFORMATION
  Report Type: 
  Country: None (occurrence: None)
  Receive Date: 20060330
  Receipt Date: 20060317
  Transmission Date: 20060701
  Serious: Yes (Other)
  Sender: FDA-Public Use
  Company Number: 02100-JPN-06-0037

PATIENT
  Age: 77 Year
  Sex: Male

DRUGS (7)
  1. CILOSTAZOL [Suspect]
     Indication: ARTERIOSCLEROSIS OBLITERANS
     Dosage: 200 MG, ORAL
     Route: 048
     Dates: start: 20060116, end: 20060119
  2. WARFARIN POTASSIUM [Concomitant]
  3. ENALAPRIL MALEATE [Concomitant]
  4. FAMOTIDINE [Concomitant]
  5. FUROSEMIDE [Concomitant]
  6. SPIRONOLACTONE [Concomitant]
  7. VOGLIBOSE [Concomitant]

REACTIONS (6)
  - ALANINE AMINOTRANSFERASE INCREASED [None]
  - BLOOD GLUCOSE INCREASED [None]
  - BLOOD UREA INCREASED [None]
  - HEART RATE INCREASED [None]
  - VENTRICULAR ARRHYTHMIA [None]
  - VENTRICULAR EXTRASYSTOLES [None]
